FAERS Safety Report 6275525-7 (Version None)
Quarter: 2009Q3

REPORT INFORMATION
  Report Type: 
  Country: None (occurrence: None)
  Receive Date: 20090721
  Receipt Date: 20090710
  Transmission Date: 20100115
  Serious: Yes (Other)
  Sender: FDA-Public Use
  Company Number: JP-PFIZER INC-2009240453

PATIENT

DRUGS (1)
  1. HALCION [Suspect]

REACTIONS (1)
  - COMA [None]
